FAERS Safety Report 24175085 (Version 2)
Quarter: 2024Q3

REPORT INFORMATION
  Report Type: Spontaneous
  Country: NO (occurrence: NO)
  Receive Date: 20240805
  Receipt Date: 20240808
  Transmission Date: 20241017
  Serious: Yes (Disabling, Other)
  Sender: NOVARTIS
  Company Number: NO-NOMAADVRE-RELISSO-2024-Vxep7

PATIENT
  Age: 67 Year
  Sex: Female

DRUGS (1)
  1. ZOMETA [Suspect]
     Active Substance: ZOLEDRONIC ACID
     Indication: Breast cancer
     Dosage: 4 MG (11 DOSES ADMINISTERED TOTALLY)
     Route: 041
     Dates: start: 20141127, end: 20190613

REACTIONS (1)
  - Polyneuropathy [Not Recovered/Not Resolved]

NARRATIVE: CASE EVENT DATE: 20150101
